FAERS Safety Report 20403622 (Version 1)
Quarter: 2022Q1

REPORT INFORMATION
  Report Type: Spontaneous
  Country: US (occurrence: US)
  Receive Date: 20220131
  Receipt Date: 20220131
  Transmission Date: 20220423
  Serious: No
  Sender: FDA-Public Use
  Company Number: US-DECIPHERA PHARMACEUTICALS LLC-2021US001171

PATIENT
  Sex: Female

DRUGS (1)
  1. QINLOCK [Suspect]
     Active Substance: RIPRETINIB
     Indication: Neoplasm malignant
     Dosage: 100 MILLIGRAM, QD
     Route: 048
     Dates: start: 20210609

REACTIONS (2)
  - Malaise [Unknown]
  - Dysphonia [Unknown]

NARRATIVE: CASE EVENT DATE: 20210101
